FAERS Safety Report 6260298-4 (Version None)
Quarter: 2009Q3

REPORT INFORMATION
  Report Type: 
  Country: None (occurrence: None)
  Receive Date: 20090706
  Receipt Date: 20090623
  Transmission Date: 20100115
  Serious: Yes (Other)
  Sender: FDA-Public Use
  Company Number: 230384K09BRA

PATIENT
  Sex: Female

DRUGS (6)
  1. REBIF [Suspect]
     Indication: RELAPSING-REMITTING MULTIPLE SCLEROSIS
     Dosage: 22 MCG, 3 IN 1 WEEKS
     Dates: start: 20011030, end: 20040419
  2. REBIF [Suspect]
     Indication: RELAPSING-REMITTING MULTIPLE SCLEROSIS
     Dosage: 22 MCG, 3 IN 1 WEEKS
     Dates: start: 20040419
  3. OTHERS (ALL OTHER THERAPEUTIC PRODUCTS) [Concomitant]
  4. RIVOTRIL (CLONAZEPAM) [Concomitant]
  5. TYLENOL [Concomitant]
  6. DIPIRONE [METAMIZOLE] (METAMIZOLE SODIUM) [Concomitant]

REACTIONS (3)
  - DENGUE FEVER [None]
  - PAIN [None]
  - RASH MACULO-PAPULAR [None]
